FAERS Safety Report 4826727-5 (Version None)
Quarter: 2005Q4

REPORT INFORMATION
  Report Type: 
  Country: None (occurrence: None)
  Receive Date: 20051110
  Receipt Date: 20051110
  Transmission Date: 20060501
  Serious: Yes (Other)
  Sender: FDA-Public Use
  Company Number: None

PATIENT
  Age: 34 Year
  Sex: Female
  Weight: 105.2345 kg

DRUGS (1)
  1. CLIMARA [Suspect]
     Dosage: 0.05 PATCH

REACTIONS (2)
  - BLISTER [None]
  - PRURITUS [None]
